FAERS Safety Report 23735189 (Version 1)
Quarter: 2024Q2

REPORT INFORMATION
  Report Type: Spontaneous
  Country: JP (occurrence: JP)
  Receive Date: 20240412
  Receipt Date: 20240412
  Transmission Date: 20240716
  Serious: Yes (Other)
  Sender: FDA-Public Use
  Company Number: JP-KYOWAKIRIN-2024KK005450

PATIENT
  Age: 52 Year
  Sex: Male

DRUGS (6)
  1. DARBEPOETIN ALFA [Suspect]
     Active Substance: DARBEPOETIN ALFA
     Indication: Nephrogenic anaemia
     Dosage: 120 MICROGRAM
     Route: 010
  2. DARBEPOETIN ALFA [Suspect]
     Active Substance: DARBEPOETIN ALFA
     Dosage: 40 MICROGRAM
     Route: 010
  3. DARBEPOETIN ALFA [Suspect]
     Active Substance: DARBEPOETIN ALFA
     Dosage: 15 MICROGRAM
     Route: 010
  4. DAPRODUSTAT [Concomitant]
     Active Substance: DAPRODUSTAT
     Indication: Anaemia
     Dosage: 4 MG
     Route: 048
     Dates: start: 20230113
  5. DAPRODUSTAT [Concomitant]
     Active Substance: DAPRODUSTAT
     Dosage: 22 MG
     Route: 048
  6. DAPRODUSTAT [Concomitant]
     Active Substance: DAPRODUSTAT
     Dosage: 10 MG
     Route: 048

REACTIONS (2)
  - Red cell fragmentation syndrome [Recovering/Resolving]
  - Anaemia [Recovered/Resolved]

NARRATIVE: CASE EVENT DATE: 20211001
